FAERS Safety Report 5376164-2 (Version None)
Quarter: 2007Q3

REPORT INFORMATION
  Report Type: 
  Country: None (occurrence: None)
  Receive Date: 20070702
  Receipt Date: 20070619
  Transmission Date: 20080115
  Serious: Yes (Hospitalization)
  Sender: FDA-Public Use
  Company Number: AU-GENENTECH-243526

PATIENT
  Sex: Male
  Weight: 69.796 kg

DRUGS (3)
  1. BEVACIZUMAB [Suspect]
     Indication: COLON CANCER
     Dosage: 525 MG, Q3W
     Route: 042
     Dates: start: 20070305, end: 20070618
  2. CAPECITABINE [Suspect]
     Indication: COLON CANCER
     Dosage: 1800 MG, QD
     Route: 048
     Dates: start: 20070305, end: 20070618
  3. OXALIPLATIN [Suspect]
     Indication: COLON CANCER
     Dosage: 250 MG, Q3W
     Route: 042
     Dates: start: 20070305, end: 20070618

REACTIONS (1)
  - PYREXIA [None]
